FAERS Safety Report 16676057 (Version 1)
Quarter: 2019Q3

REPORT INFORMATION
  Report Type: Spontaneous
  Country: BR (occurrence: BR)
  Receive Date: 20190807
  Receipt Date: 20190807
  Transmission Date: 20191004
  Serious: Yes (Hospitalization)
  Sender: FDA-Public Use
  Company Number: BR-BIOGEN-2019BI00770238

PATIENT
  Sex: Female

DRUGS (3)
  1. AQUETIAPINE HEMIFUMARATE [Concomitant]
     Indication: ANXIETY
     Route: 065
  2. TIZANIDINE HYDROCHLORIDE. [Concomitant]
     Active Substance: TIZANIDINE HYDROCHLORIDE
     Indication: MUSCLE SPASTICITY
     Route: 065
  3. TECFIDERA [Suspect]
     Active Substance: DIMETHYL FUMARATE
     Indication: MULTIPLE SCLEROSIS
     Route: 048
     Dates: end: 201904

REACTIONS (2)
  - Chronic obstructive pulmonary disease [Unknown]
  - Dysphagia [Not Recovered/Not Resolved]
